FAERS Safety Report 8286374-2 (Version None)
Quarter: 2012Q2

REPORT INFORMATION
  Report Type: 
  Country: None (occurrence: None)
  Receive Date: 20120411
  Receipt Date: 20120406
  Transmission Date: 20120825
  Serious: Yes (Other)
  Sender: FDA-Public Use
  Company Number: 2011SP057911

PATIENT
  Age: 64 Year
  Sex: Male

DRUGS (15)
  1. CHINESE HERBAL MEDICINE [Concomitant]
  2. SEROQUEL [Concomitant]
  3. DESYREL [Concomitant]
  4. TERBINAFINE HCL [Concomitant]
  5. RIKKUNSHITO [Concomitant]
  6. BETAMETHASONE BUTYRATE PROPIONATE [Concomitant]
  7. MIRTAZAPINE [Suspect]
     Indication: DEPRESSION
     Dosage: 15 MG;QD;PO, 30 MG;QD;PO, 15 MG;QD;PO
     Route: 048
     Dates: start: 20111115, end: 20111213
  8. MIRTAZAPINE [Suspect]
     Indication: DEPRESSION
     Dosage: 15 MG;QD;PO, 30 MG;QD;PO, 15 MG;QD;PO
     Route: 048
     Dates: start: 20110930, end: 20111114
  9. MIRTAZAPINE [Suspect]
     Indication: DEPRESSION
     Dosage: 15 MG;QD;PO, 30 MG;QD;PO, 15 MG;QD;PO
     Route: 048
     Dates: start: 20110916, end: 20110929
  10. PREDNISOLONE [Concomitant]
  11. MONTELUKAST SODIUM [Concomitant]
  12. SULPIRIDE [Concomitant]
  13. AMOBAN [Concomitant]
  14. LENDORMIN [Concomitant]
  15. LANSOPRAZOLE [Concomitant]

REACTIONS (3)
  - GASTROENTERITIS EOSINOPHILIC [None]
  - GASTRIC ULCER [None]
  - DISEASE RECURRENCE [None]
